FAERS Safety Report 9650827 (Version 4)
Quarter: 2013Q4

REPORT INFORMATION
  Report Type: Spontaneous
  Country: US (occurrence: US)
  Receive Date: 20131029
  Receipt Date: 20131219
  Transmission Date: 20140711
  Serious: Yes (Hospitalization)
  Sender: FDA-Public Use
  Company Number: US-JNJFOC-20131009693

PATIENT
  Age: 61 Year
  Sex: Female
  Weight: 56.7 kg

DRUGS (4)
  1. DURAGESIC [Suspect]
     Indication: PAIN
     Route: 062
     Dates: start: 20131001, end: 20131014
  2. DURAGESIC [Suspect]
     Indication: PAIN
     Route: 062
     Dates: start: 201307, end: 20131001
  3. FENTANYL [Suspect]
     Indication: PAIN
     Route: 062
     Dates: start: 201307, end: 201310
  4. PERCOCET [Suspect]
     Indication: BREAKTHROUGH PAIN
     Dosage: 10/325 MG
     Route: 048
     Dates: start: 201307, end: 20131024

REACTIONS (11)
  - Withdrawal syndrome [Not Recovered/Not Resolved]
  - Depression [Unknown]
  - Chest pain [Recovered/Resolved]
  - Infection [Unknown]
  - Drug dose omission [Unknown]
  - Pyrexia [Unknown]
  - Feeling cold [Unknown]
  - Crying [Not Recovered/Not Resolved]
  - Chest discomfort [Recovered/Resolved]
  - Wrong technique in drug usage process [Not Recovered/Not Resolved]
  - Feeling hot [Not Recovered/Not Resolved]
